FAERS Safety Report 9705049 (Version 1)
Quarter: 2013Q4

REPORT INFORMATION
  Report Type: Report from Study
  Country: US (occurrence: US)
  Receive Date: 20131122
  Receipt Date: 20131122
  Transmission Date: 20140711
  Serious: No
  Sender: FDA-Public Use
  Company Number: US-ABBVIE-13P-163-1136576-00

PATIENT
  Age: 60 Year
  Sex: Male
  Weight: 79.45 kg

DRUGS (2)
  1. ANDROGEL [Suspect]
     Indication: BLOOD TESTOSTERONE DECREASED
     Dates: start: 20130523, end: 20130715
  2. ATIVAN [Concomitant]
     Indication: INSOMNIA

REACTIONS (2)
  - Prostatic specific antigen increased [Recovered/Resolved]
  - Blood testosterone decreased [Recovered/Resolved]
